FAERS Safety Report 20647393 (Version 1)
Quarter: 2022Q1

REPORT INFORMATION
  Report Type: Report from Study
  Country: PK (occurrence: PK)
  Receive Date: 20220329
  Receipt Date: 20220329
  Transmission Date: 20220423
  Serious: Yes (Death)
  Sender: FDA-Public Use
  Company Number: PK-NOVARTISPH-NVSC2022PK070519

PATIENT
  Age: 48 Year
  Sex: Female
  Weight: 45 kg

DRUGS (1)
  1. KISQALI [Suspect]
     Active Substance: RIBOCICLIB
     Indication: Breast cancer
     Dosage: 200 MG, QD (3 TABS)
     Route: 048
     Dates: start: 20210913, end: 20220215

REACTIONS (1)
  - Death [Fatal]

NARRATIVE: CASE EVENT DATE: 20220215
